FAERS Safety Report 7121663-6 (Version None)
Quarter: 2010Q4

REPORT INFORMATION
  Report Type: 
  Country: None (occurrence: None)
  Receive Date: 20101124
  Receipt Date: 20101111
  Transmission Date: 20110411
  Serious: No
  Sender: FDA-Public Use
  Company Number: US-PFIZER INC-2010124370

PATIENT
  Sex: Male
  Weight: 63 kg

DRUGS (6)
  1. VIAGRA [Suspect]
     Indication: ERECTILE DYSFUNCTION
     Dosage: 50 MG, AS NEEDED
     Route: 048
     Dates: start: 20100901, end: 20100901
  2. WARFARIN [Concomitant]
     Dosage: UNK
  3. FUROSEMIDE [Concomitant]
  4. LOVASTATIN [Concomitant]
  5. POTASSIUM CHLORIDE [Concomitant]
  6. FOLATE [Concomitant]

REACTIONS (2)
  - DRUG INEFFECTIVE [None]
  - ERECTILE DYSFUNCTION [None]
